FAERS Safety Report 9239540 (Version 1)
Quarter: 2013Q2

REPORT INFORMATION
  Report Type: Spontaneous
  Country: US (occurrence: US)
  Receive Date: 20130418
  Receipt Date: 20130418
  Transmission Date: 20140414
  Serious: Yes (Hospitalization)
  Sender: FDA-Public Use
  Company Number: US-VERTEX PHARMACEUTICALS INC.-2013-005044

PATIENT
  Age: 57 Year
  Sex: Male

DRUGS (3)
  1. INCIVEK [Suspect]
     Indication: HEPATITIS C
     Route: 048
  2. RIBAVIRIN [Suspect]
     Indication: HEPATITIS C
     Dosage: UNK
  3. PEGINTERFERON ALFA-2A [Suspect]
     Indication: HEPATITIS C

REACTIONS (2)
  - Rash [Unknown]
  - Cellulitis [Unknown]
